FAERS Safety Report 4802102-4 (Version None)
Quarter: 2005Q4

REPORT INFORMATION
  Report Type: 
  Country: None (occurrence: None)
  Receive Date: 20051018
  Receipt Date: 20051007
  Transmission Date: 20060501
  Serious: Yes (Other)
  Sender: FDA-Public Use
  Company Number: PHBS2005MX14872

PATIENT
  Age: 57 Year
  Sex: Female

DRUGS (2)
  1. ZADITEN [Suspect]
     Indication: HYPERSENSITIVITY
     Dosage: 1 MG/DAY
     Route: 048
     Dates: start: 20050811, end: 20050907
  2. ZADITEN [Suspect]
     Dosage: 0.5 MG/DAY
     Route: 048

REACTIONS (15)
  - ALANINE AMINOTRANSFERASE INCREASED [None]
  - ANTI-HBC IGG ANTIBODY POSITIVE [None]
  - ASPARTATE AMINOTRANSFERASE INCREASED [None]
  - BLOOD ALKALINE PHOSPHATASE INCREASED [None]
  - BLOOD LACTATE DEHYDROGENASE INCREASED [None]
  - C-REACTIVE PROTEIN INCREASED [None]
  - CHILLS [None]
  - ERYTHEMA [None]
  - GAMMA-GLUTAMYLTRANSFERASE INCREASED [None]
  - HEADACHE [None]
  - HEPATIC ENZYME INCREASED [None]
  - HEPATITIS A ANTIBODY POSITIVE [None]
  - HYPERHIDROSIS [None]
  - PYREXIA [None]
  - SOMNOLENCE [None]
